FAERS Safety Report 20150731 (Version 1)
Quarter: 2021Q4

REPORT INFORMATION
  Report Type: Other
  Country: CN (occurrence: None)
  Receive Date: 20211206
  Receipt Date: 20211206
  Transmission Date: 20220303
  Serious: Yes (Other)
  Sender: FDA-Public Use
  Company Number: CN-ROCHE-2973937

PATIENT

DRUGS (4)
  1. BEVACIZUMAB [Suspect]
     Active Substance: BEVACIZUMAB
     Indication: Non-small cell lung cancer
     Dosage: 3 WEEKS AS A CHEMOTHERAPY CYCLE, CONTINUOUS TREATMENT FOR 3 MONTHS.
     Route: 065
  2. PACLITAXEL [Suspect]
     Active Substance: PACLITAXEL
     Indication: Non-small cell lung cancer
     Dosage: ON DAY 1, 3 WEEKS AS A CHEMOTHERAPY CYCLE, CONTINUOUS TREATMENT FOR 3 MONTHS.
     Route: 041
  3. CISPLATIN [Suspect]
     Active Substance: CISPLATIN
     Indication: Non-small cell lung cancer
     Dosage: 2ND TO 5TH DAY; 3 WEEKS AS A CHEMOTHERAPY CYCLE, CONTINUOUS TREATMENT FOR 3 MONTHS.
     Route: 041
  4. SODIUM CHLORIDE [Concomitant]
     Active Substance: SODIUM CHLORIDE
     Route: 041

REACTIONS (1)
  - Myelosuppression [Unknown]
